FAERS Safety Report 12603029 (Version 10)
Quarter: 2017Q3

REPORT INFORMATION
  Report Type: Report from Study
  Country: CO (occurrence: CO)
  Receive Date: 20160728
  Receipt Date: 20170912
  Transmission Date: 20171127
  Serious: Yes (Hospitalization, Other)
  Sender: FDA-Public Use
  Company Number: PHHY2016CO097432

PATIENT
  Age: 70 Year
  Sex: Female
  Weight: 58 kg

DRUGS (11)
  1. TASIGNA [Suspect]
     Active Substance: NILOTINIB
     Dosage: 200 MG, QD (1 CAPSULE DAILY)
     Route: 048
     Dates: start: 20161010
  2. MOVIDOL [Concomitant]
     Indication: LIMB DISCOMFORT
     Dosage: PRN (ONLY WHEN SHE FEEL THE DISTURBANCE)
     Route: 065
  3. MOVIDOL [Concomitant]
     Indication: DISLOCATION OF VERTEBRA
  4. OMEPRAZOLE. [Concomitant]
     Active Substance: OMEPRAZOLE
     Indication: PRODUCT USED FOR UNKNOWN INDICATION
     Dosage: UNK
     Route: 065
  5. TASIGNA [Suspect]
     Active Substance: NILOTINIB
     Dosage: 200 MG, QD
     Route: 048
     Dates: start: 20160920
  6. TASIGNA [Suspect]
     Active Substance: NILOTINIB
     Indication: CHRONIC MYELOID LEUKAEMIA
     Dosage: 200 MG, BID
     Route: 048
     Dates: start: 2010
  7. TASIGNA [Suspect]
     Active Substance: NILOTINIB
     Dosage: 150 MG, BID (2 TABLETS OF 150 MG)
     Route: 048
     Dates: start: 20170216, end: 20170907
  8. MELOXICAM. [Concomitant]
     Active Substance: MELOXICAM
     Indication: LIMB DISCOMFORT
     Dosage: PRN (ONLY WHEN SHE FEEL THE DISTURBANCE)
     Route: 065
  9. MELOXICAM. [Concomitant]
     Active Substance: MELOXICAM
     Indication: DISLOCATION OF VERTEBRA
  10. TASIGNA [Suspect]
     Active Substance: NILOTINIB
     Dosage: 200 MG, QD (2 CAPSULES)
     Route: 048
     Dates: start: 20160706, end: 20160827
  11. ACETAMINOPHEN. [Concomitant]
     Active Substance: ACETAMINOPHEN
     Indication: ARTHRALGIA
     Dosage: 500 MG, BID
     Route: 048

REACTIONS (24)
  - Platelet count decreased [Unknown]
  - Nausea [Recovered/Resolved]
  - Rash generalised [Unknown]
  - Pruritus [Unknown]
  - Gastritis [Unknown]
  - Drug intolerance [Unknown]
  - Scar [Unknown]
  - Weight decreased [Unknown]
  - Dizziness [Recovered/Resolved]
  - Decreased appetite [Unknown]
  - Hypersensitivity [Unknown]
  - Abdominal pain upper [Not Recovered/Not Resolved]
  - Headache [Recovered/Resolved]
  - Peripheral coldness [Not Recovered/Not Resolved]
  - Dehydration [Unknown]
  - Cold sweat [Not Recovered/Not Resolved]
  - Hepatic pain [Recovered/Resolved]
  - Yellow skin [Recovered/Resolved]
  - Pain in extremity [Unknown]
  - Therapeutic response decreased [Unknown]
  - Rectal haemorrhage [Unknown]
  - Discomfort [Unknown]
  - Liver disorder [Unknown]
  - Acne [Recovered/Resolved]

NARRATIVE: CASE EVENT DATE: 20160812
